FAERS Safety Report 9346002 (Version 2)
Quarter: 2015Q2

REPORT INFORMATION
  Report Type: Spontaneous
  Country: TN (occurrence: TN)
  Receive Date: 20130613
  Receipt Date: 20150420
  Transmission Date: 20150821
  Serious: Yes (Other)
  Sender: FDA-Public Use
  Company Number: PHHY2013TN057856

PATIENT
  Age: 60 Year
  Sex: Female

DRUGS (1)
  1. ATORVASTATIN [Suspect]
     Active Substance: ATORVASTATIN
     Indication: DYSLIPIDAEMIA
     Route: 065

REACTIONS (7)
  - Piriformis syndrome [Recovering/Resolving]
  - Sciatica [Recovering/Resolving]
  - Muscle spasms [Unknown]
  - Muscle enzyme increased [Unknown]
  - Myalgia [Recovering/Resolving]
  - Gait disturbance [Unknown]
  - Musculoskeletal pain [Recovering/Resolving]
